FAERS Safety Report 22619067 (Version 2)
Quarter: 2024Q3

REPORT INFORMATION
  Report Type: Spontaneous
  Country: US (occurrence: US)
  Receive Date: 20230620
  Receipt Date: 20240711
  Transmission Date: 20241016
  Serious: No
  Sender: PIERRE FABRE MEDICAMENT
  Company Number: US-PFM-2023-00840

PATIENT
  Age: 0 Year
  Sex: Male
  Weight: 6.5 kg

DRUGS (1)
  1. HEMANGEOL [Suspect]
     Active Substance: PROPRANOLOL HYDROCHLORIDE
     Indication: Infantile haemangioma
     Dosage: 0.9 ML, BID (2/DAY)
     Route: 048
     Dates: start: 20230113, end: 20230120

REACTIONS (3)
  - Gastrooesophageal reflux disease [Recovered/Resolved]
  - Restlessness [Recovered/Resolved]
  - Abdominal pain upper [Recovered/Resolved]

NARRATIVE: CASE EVENT DATE: 20230113
